FAERS Safety Report 12785315 (Version 1)
Quarter: 2016Q3

REPORT INFORMATION
  Report Type: Spontaneous
  Country: US (occurrence: US)
  Receive Date: 20160927
  Receipt Date: 20160927
  Transmission Date: 20161109
  Serious: No
  Sender: FDA-Public Use
  Company Number: US-FRI-1000082263

PATIENT
  Age: 72 Year
  Sex: Female
  Weight: 72.1 kg

DRUGS (9)
  1. LINZESS [Suspect]
     Active Substance: LINACLOTIDE
     Dosage: 290 ?G, FREQUENCY 1,FREQ_TIME 3,FREQ UNIT DAYS
     Route: 048
     Dates: start: 201601
  2. LIQUID MEDICINE (NOT SPECIFIED) [Concomitant]
     Dosage: UNK
  3. SLEEP MEDICATION (NOT SPECIFIED) [Concomitant]
     Dosage: UNK
  4. SUCRALFATE. [Concomitant]
     Active Substance: SUCRALFATE
     Dosage: UNK
  5. PROBIOTICS [Concomitant]
     Active Substance: PROBIOTICS NOS
     Dosage: UNK
  6. STOOL SOFTENER [Concomitant]
     Active Substance: DOCUSATE CALCIUM
     Dosage: UNK
  7. FIBER [Concomitant]
     Active Substance: PSYLLIUM HUSK
     Dosage: UNK
  8. NEXIUM [Concomitant]
     Active Substance: ESOMEPRAZOLE MAGNESIUM
     Indication: GASTRIC DISORDER
     Dosage: UNK
  9. LINZESS [Suspect]
     Active Substance: LINACLOTIDE
     Indication: IRRITABLE BOWEL SYNDROME
     Dosage: 290 ?G, QD
     Route: 048
     Dates: start: 20160116, end: 201601

REACTIONS (6)
  - Eructation [Not Recovered/Not Resolved]
  - Off label use [Not Recovered/Not Resolved]
  - Flatulence [Not Recovered/Not Resolved]
  - Abdominal distension [Not Recovered/Not Resolved]
  - Back pain [Not Recovered/Not Resolved]
  - Abdominal pain [Not Recovered/Not Resolved]

NARRATIVE: CASE EVENT DATE: 201601
